FAERS Safety Report 10102563 (Version 2)
Quarter: 2014Q2

REPORT INFORMATION
  Report Type: Other
  Country: US (occurrence: US)
  Receive Date: 20140424
  Receipt Date: 20140612
  Transmission Date: 20141212
  Serious: Yes (Hospitalization, Other)
  Sender: FDA-Public Use
  Company Number: US-GSKPPD-2014GSK000227

PATIENT
  Age: 61 Year
  Sex: Female
  Weight: 76.8 kg

DRUGS (3)
  1. AVANDIA [Suspect]
     Indication: DIABETES MELLITUS
     Route: 048
     Dates: start: 20040831, end: 20050804
  2. NORVASC [Concomitant]
     Route: 048
  3. TARKA [Concomitant]
     Dosage: 2/240MG
     Route: 048
     Dates: start: 2006

REACTIONS (1)
  - Cerebrovascular accident [Recovered/Resolved]
